FAERS Safety Report 15782362 (Version 1)
Quarter: 2019Q1

REPORT INFORMATION
  Report Type: Spontaneous
  Country: US (occurrence: US)
  Receive Date: 20190102
  Receipt Date: 20190102
  Transmission Date: 20190417
  Serious: Yes (Hospitalization, Other)
  Sender: FDA-Public Use
  Company Number: US-BRISTOL-MYERS SQUIBB COMPANY-BMS-2018-122984

PATIENT
  Age: 30 Year

DRUGS (2)
  1. TRIAMCINOLONE ACETONIDE. [Suspect]
     Active Substance: TRIAMCINOLONE ACETONIDE
     Indication: SCLERITIS
     Dosage: 4 MG, UNK
     Route: 057
  2. TRIAMCINOLONE ACETONIDE. [Suspect]
     Active Substance: TRIAMCINOLONE ACETONIDE
     Indication: IRIDOCYCLITIS
     Route: 065

REACTIONS (4)
  - Product use in unapproved indication [Unknown]
  - Panophthalmitis [Unknown]
  - Product use issue [Unknown]
  - Acanthamoeba infection [Unknown]
